FAERS Safety Report 9493984 (Version 4)
Quarter: 2014Q3

REPORT INFORMATION
  Report Type: Report from Study
  Country: AU (occurrence: AU)
  Receive Date: 20130903
  Receipt Date: 20140715
  Transmission Date: 20150326
  Serious: Yes (Hospitalization)
  Sender: FDA-Public Use
  Company Number: AU-ROCHE-1264355

PATIENT
  Age: 93 Year
  Sex: Female
  Weight: 68.1 kg

DRUGS (13)
  1. ACIMAX [Concomitant]
     Active Substance: OMEPRAZOLE
     Route: 065
     Dates: start: 201302
  2. WARFARIN [Concomitant]
     Active Substance: WARFARIN
     Route: 065
     Dates: start: 201302
  3. FLUNISOLIDE. [Concomitant]
     Active Substance: FLUNISOLIDE
  4. SERRAPEPTASE [Concomitant]
     Active Substance: SERRAPEPTASE
     Indication: ASTHMA
     Route: 065
     Dates: start: 201302
  5. OMEPRAZOLE. [Concomitant]
     Active Substance: OMEPRAZOLE
  6. FENTANYL. [Concomitant]
     Active Substance: FENTANYL
  7. CELECOXIB. [Concomitant]
     Active Substance: CELECOXIB
  8. SYMBICORT [Concomitant]
     Active Substance: BUDESONIDE\FORMOTEROL FUMARATE DIHYDRATE
     Dosage: 200/6 MCG
     Route: 065
  9. VITAMIN D2 [Concomitant]
     Active Substance: ERGOCALCIFEROL
  10. CHOLECALCIFEROL [Concomitant]
     Active Substance: CHOLECALCIFEROL
  11. GLYCERIN SUPPOSITORIES [Concomitant]
  12. RANIBIZUMAB [Suspect]
     Active Substance: RANIBIZUMAB
     Indication: AGE-RELATED MACULAR DEGENERATION
     Dosage: LAST DOSE PRIOR TO AE ONSET ON 03 FEB 2013
     Route: 050
     Dates: start: 20110923
  13. SPIRIVA [Concomitant]
     Active Substance: TIOTROPIUM BROMIDE MONOHYDRATE
     Indication: ASTHMA
     Route: 065
     Dates: start: 201302

REACTIONS (14)
  - Pubis fracture [Unknown]
  - Vitamin D deficiency [Unknown]
  - Arthralgia [Unknown]
  - Osteoarthritis [Unknown]
  - Intervertebral disc degeneration [Unknown]
  - Fall [Unknown]
  - Osteosclerosis [Unknown]
  - Haemoglobin decreased [Unknown]
  - Hypertension [Recovering/Resolving]
  - Arthropathy [Unknown]
  - Pelvic fracture [Recovered/Resolved]
  - Calcium deficiency [Unknown]
  - Glomerular filtration rate decreased [Unknown]
  - Joint dislocation pathological [Unknown]

NARRATIVE: CASE EVENT DATE: 20130228
